FAERS Safety Report 6315904-2 (Version None)
Quarter: 2009Q3

REPORT INFORMATION
  Report Type: 
  Country: None (occurrence: None)
  Receive Date: 20090820
  Receipt Date: 20090811
  Transmission Date: 20100115
  Serious: Yes (Hospitalization)
  Sender: FDA-Public Use
  Company Number: FR-WYE-H10544509

PATIENT
  Age: 50 Year
  Sex: Female

DRUGS (3)
  1. EFFEXOR [Suspect]
     Dosage: 1,500 MG INGESTED
  2. BROMAZEPAM [Suspect]
     Dosage: 360 MG INGESTED
  3. NICARDIPINE HYDROCHLORIDE [Suspect]
     Dosage: 3000 MG INGESTED

REACTIONS (6)
  - CIRCULATORY COLLAPSE [None]
  - DRUG TOXICITY [None]
  - INTESTINAL INFARCTION [None]
  - INTESTINAL ISCHAEMIA [None]
  - OVERDOSE [None]
  - VASOPLEGIA SYNDROME [None]
